FAERS Safety Report 6763624-2 (Version None)
Quarter: 2010Q2

REPORT INFORMATION
  Report Type: 
  Country: None (occurrence: None)
  Receive Date: 20100610
  Receipt Date: 20100530
  Transmission Date: 20101027
  Serious: Yes (Hospitalization, Other)
  Sender: FDA-Public Use
  Company Number: AU-ELI_LILLY_AND_COMPANY-AU201003001067

PATIENT
  Sex: Male
  Weight: 57.7 kg

DRUGS (11)
  1. GEMCITABINE HYDROCHLORIDE [Suspect]
     Indication: PANCREATIC CARCINOMA
     Dosage: 1000 MG, UNKNOWN
     Route: 065
     Dates: start: 20100219
  2. RAMIPRIL [Concomitant]
     Indication: HYPERTENSION
     Dosage: 5 YEARS
     Route: 048
     Dates: start: 20050101
  3. GLICLAZIDE [Concomitant]
     Indication: DIABETES MELLITUS
     Route: 048
     Dates: start: 20000101
  4. ESOMEPRAZOLE [Concomitant]
     Indication: GASTROOESOPHAGEAL REFLUX DISEASE
     Route: 048
     Dates: start: 20100131
  5. OXYCODONE HYDROCHLORIDE [Concomitant]
     Indication: PAIN
     Route: 048
     Dates: start: 20100119
  6. METOCLOPRAMIDE                     /00041901/ [Concomitant]
     Indication: NAUSEA
     Route: 048
     Dates: start: 20100226
  7. PARACETAMOL [Concomitant]
     Indication: PAIN
     Route: 048
     Dates: start: 19991201
  8. TEMAZEPAM [Concomitant]
     Indication: INSOMNIA
     Route: 048
     Dates: start: 20100228
  9. MIRTAZAPINE [Concomitant]
     Indication: DECREASED APPETITE
     Route: 048
     Dates: start: 20100224
  10. DEXAMETHASONE [Concomitant]
     Indication: DECREASED APPETITE
     Route: 048
     Dates: start: 20100224
  11. DOCUSATE SODIUM [Concomitant]
     Indication: CONSTIPATION
     Route: 048
     Dates: start: 20100205

REACTIONS (5)
  - DECREASED APPETITE [None]
  - DEHYDRATION [None]
  - LYMPHANGITIS [None]
  - MALIGNANT NEOPLASM OF AMPULLA OF VATER [None]
  - METASTASES TO LUNG [None]
